FAERS Safety Report 15227683 (Version 6)
Quarter: 2019Q4

REPORT INFORMATION
  Report Type: Spontaneous
  Country: CA (occurrence: CA)
  Receive Date: 20180801
  Receipt Date: 20191125
  Transmission Date: 20200122
  Serious: Yes (Other)
  Sender: FDA-Public Use
  Company Number: CA-PFIZER INC-2018303733

PATIENT
  Age: 25 Year
  Sex: Male
  Weight: 78 kg

DRUGS (28)
  1. FLOVENT HFA [Concomitant]
     Active Substance: FLUTICASONE PROPIONATE
     Dosage: 250 MICROGRAM, BID (AEROSOL)
     Route: 048
     Dates: start: 20130815, end: 20160901
  2. ZINC GLUCONATE [Concomitant]
     Active Substance: ZINC GLUCONATE
     Dosage: 50 MILLIGRAM, QD
     Route: 065
     Dates: start: 20160901, end: 20170227
  3. AZITHROMYCIN ANHYDROUS. [Concomitant]
     Active Substance: AZITHROMYCIN ANHYDROUS
     Dosage: 250 MILLIGRAM, QD
     Route: 065
  4. CONSTELLA [Concomitant]
     Active Substance: LINACLOTIDE
     Dosage: 290 MICROGRAM, QD
     Route: 048
     Dates: start: 20160901, end: 20160901
  5. SYNTHROID [Concomitant]
     Active Substance: LEVOTHYROXINE SODIUM
     Dosage: 150 MICROGRAM, QD
     Route: 048
     Dates: start: 20140227, end: 20171027
  6. TYLENOL [Concomitant]
     Active Substance: ACETAMINOPHEN
     Dosage: UNK
     Route: 065
  7. TOVIAZ [Suspect]
     Active Substance: FESOTERODINE FUMARATE
     Indication: HYPERTONIC BLADDER
     Dosage: 4 MILLIGRAM, QD
     Route: 048
     Dates: start: 20150929, end: 20171027
  8. OTRIVIN [Concomitant]
     Active Substance: XYLOMETAZOLINE
     Dosage: UNK, BID
     Route: 045
  9. SEROQUEL [Concomitant]
     Active Substance: QUETIAPINE FUMARATE
     Dosage: 100 MILLIGRAM, QD
     Route: 048
  10. ZYLOPRIM [Concomitant]
     Active Substance: ALLOPURINOL
     Dosage: 100 MILLIGRAM, QD
     Route: 048
     Dates: start: 20171006, end: 20171006
  11. ACZONE [Concomitant]
     Active Substance: DAPSONE
     Dosage: UNK, QD
     Route: 061
     Dates: start: 20130815, end: 20160901
  12. CETAPHIL (AVOBENZONE\OCTOCRYLENE) [Concomitant]
     Active Substance: AVOBENZONE\OCTOCRYLENE
     Dosage: UNK, QD (DAILY FACIAL MOISTURIZER)
     Route: 061
     Dates: start: 20130815, end: 20160901
  13. DICLOFENAC [Concomitant]
     Active Substance: DICLOFENAC
     Dosage: UNK
     Route: 065
  14. TEARS PLUS [Concomitant]
     Active Substance: POLYVINYL ALCOHOL\POVIDONE
     Dosage: 2 GTT DROPS, Q4HR
     Route: 047
  15. TECTA [Concomitant]
     Active Substance: PANTOPRAZOLE MAGNESIUM
     Dosage: 40 MILLIGRAM, QD
     Route: 048
     Dates: start: 20140227, end: 20171020
  16. CIPRALEX [Concomitant]
     Active Substance: ESCITALOPRAM OXALATE
     Indication: HYPERTONIC BLADDER
     Dosage: UNK
     Route: 048
     Dates: start: 20140227, end: 20171027
  17. VITAMIN D [Concomitant]
     Active Substance: VITAMIN D NOS
     Dosage: 2000 INTERNATIONAL UNIT, QD
     Route: 048
  18. PANTOPRAZOLE [Suspect]
     Active Substance: PANTOPRAZOLE
     Indication: GASTROOESOPHAGEAL REFLUX DISEASE
     Dosage: 40 MG, QD (ONE EVERY ONE DAY)
     Route: 048
  19. CALCIUM [Concomitant]
     Active Substance: CALCIUM
     Dosage: 500 MILLIGRAM, TID
     Route: 048
     Dates: start: 20150929, end: 20171027
  20. GENTEAL MILD [Concomitant]
     Active Substance: HYPROMELLOSE 2910 (4000 MPA.S)
     Dosage: UNK
     Route: 047
  21. OMEGA 3-6-9 [Concomitant]
     Active Substance: FISH OIL
     Dosage: UNK, QD
     Route: 048
  22. SEROQUEL [Concomitant]
     Active Substance: QUETIAPINE FUMARATE
     Dosage: 25 MILLIGRAM, BID
     Route: 048
     Dates: start: 20140227, end: 20171227
  23. TYLENOL [Concomitant]
     Active Substance: ACETAMINOPHEN
     Dosage: UNK, TID
     Route: 048
  24. BENZACLIN TOPICAL [Concomitant]
     Dosage: UNK, QD
     Route: 061
     Dates: start: 20150929, end: 20180207
  25. EPIVAL [Concomitant]
     Active Substance: DIVALPROEX SODIUM
     Dosage: 250 MILLIGRAM, TID
     Route: 048
     Dates: start: 20140227, end: 20171227
  26. NASOCORT [Concomitant]
     Active Substance: BUDESONIDE
     Dosage: 55 MICROGRAM, BID (SPRAY, METERED)
     Route: 045
     Dates: start: 20150929, end: 20160901
  27. TYLENOL [Concomitant]
     Active Substance: ACETAMINOPHEN
     Dosage: UNK
     Route: 065
  28. AZITHROMYCIN ANHYDROUS. [Concomitant]
     Active Substance: AZITHROMYCIN ANHYDROUS
     Dosage: 500 MILLIGRAM, QD
     Route: 065
     Dates: start: 20171209, end: 20171209

REACTIONS (3)
  - Mental impairment [Recovered/Resolved]
  - Product substitution issue [Recovered/Resolved]
  - General physical health deterioration [Recovered/Resolved]
